FAERS Safety Report 19265343 (Version 1)
Quarter: 2021Q2

REPORT INFORMATION
  Report Type: Spontaneous
  Country: FR (occurrence: FR)
  Receive Date: 20210517
  Receipt Date: 20210517
  Transmission Date: 20210717
  Serious: Yes (Death, Hospitalization)
  Sender: FDA-Public Use
  Company Number: FR-TEVA-2021-FR-1911167

PATIENT
  Age: 94 Year
  Sex: Female
  Weight: 85 kg

DRUGS (2)
  1. COUMADINE [Suspect]
     Active Substance: WARFARIN SODIUM
     Indication: PULMONARY EMBOLISM
     Dosage: 3 MG
     Route: 048
  2. NAPROXENE [Suspect]
     Active Substance: NAPROXEN
     Indication: SCIATICA
     Dosage: 2 DF
     Route: 048
     Dates: start: 20210225, end: 20210402

REACTIONS (2)
  - Prothrombin time prolonged [Recovered/Resolved]
  - Rectal haemorrhage [Recovered/Resolved]

NARRATIVE: CASE EVENT DATE: 20210302
